FAERS Safety Report 19495430 (Version 2)
Quarter: 2022Q1

REPORT INFORMATION
  Report Type: Spontaneous
  Country: GB (occurrence: GB)
  Receive Date: 20210706
  Receipt Date: 20220311
  Transmission Date: 20220423
  Serious: Yes (Life-Threatening)
  Sender: FDA-Public Use
  Company Number: GB-MHRA-EYC 00254334

PATIENT
  Age: 72 Year
  Sex: Female
  Weight: 46.71 kg

DRUGS (3)
  1. SIMVASTATIN [Suspect]
     Active Substance: SIMVASTATIN
     Indication: Myocardial infarction
     Dosage: 40G
     Route: 048
     Dates: start: 20110207, end: 201104
  2. CLOPIDOGREL [Concomitant]
     Active Substance: CLOPIDOGREL BISULFATE
     Indication: Ill-defined disorder
     Dosage: UNK
     Route: 065
  3. FUROSEMIDE [Concomitant]
     Active Substance: FUROSEMIDE
     Indication: Ill-defined disorder
     Dosage: UNK
     Route: 065

REACTIONS (2)
  - Pain in extremity [Recovered/Resolved with Sequelae]
  - Abnormal loss of weight [Unknown]

NARRATIVE: CASE EVENT DATE: 20110301
